FAERS Safety Report 9449747 (Version 1)
Quarter: 2013Q3

REPORT INFORMATION
  Report Type: Spontaneous
  Country: FR (occurrence: FR)
  Receive Date: 20130809
  Receipt Date: 20130809
  Transmission Date: 20140515
  Serious: Yes (Hospitalization)
  Sender: FDA-Public Use
  Company Number: FR-JNJFOC-20130800177

PATIENT
  Age: 87 Year
  Sex: Female

DRUGS (5)
  1. DUROGESIC [Suspect]
     Indication: ARTHRALGIA
     Route: 062
  2. EBIXA [Suspect]
     Indication: PARKINSON^S DISEASE
     Route: 048
     Dates: end: 20130423
  3. MOPRAL [Concomitant]
     Indication: GASTROOESOPHAGEAL REFLUX DISEASE
     Route: 048
  4. DEROXAT [Concomitant]
     Route: 048
  5. KARDEGIC [Concomitant]
     Indication: COAGULOPATHY
     Route: 048

REACTIONS (3)
  - Fall [Recovering/Resolving]
  - Rhabdomyolysis [Unknown]
  - Arthralgia [Unknown]
